FAERS Safety Report 21068756 (Version 1)
Quarter: 2022Q3

REPORT INFORMATION
  Report Type: Spontaneous
  Country: US (occurrence: US)
  Receive Date: 20220712
  Receipt Date: 20220712
  Transmission Date: 20221026
  Serious: Yes (Hospitalization, Other)
  Sender: FDA-Public Use
  Company Number: US-GLAXOSMITHKLINE-US2022102614

PATIENT

DRUGS (1)
  1. TRELEGY ELLIPTA [Suspect]
     Active Substance: FLUTICASONE FUROATE\UMECLIDINIUM BROMIDE\VILANTEROL TRIFENATATE
     Indication: Asthma
     Dosage: 1 PUFF(S), QD
     Dates: start: 202108, end: 202203

REACTIONS (10)
  - Multiple fractures [Recovered/Resolved]
  - Concussion [Recovered/Resolved]
  - Headache [Unknown]
  - Vision blurred [Unknown]
  - Nausea [Unknown]
  - Fall [Unknown]
  - Eye operation [Unknown]
  - Confusional state [Unknown]
  - Visual impairment [Unknown]
  - Hypersensitivity [Unknown]

NARRATIVE: CASE EVENT DATE: 20220316
